FAERS Safety Report 6065677-6 (Version None)
Quarter: 2009Q1

REPORT INFORMATION
  Report Type: 
  Country: None (occurrence: None)
  Receive Date: 20090130
  Receipt Date: 20090120
  Transmission Date: 20090719
  Serious: Yes (Hospitalization)
  Sender: FDA-Public Use
  Company Number: 1000003689

PATIENT
  Sex: Male

DRUGS (5)
  1. ESCITALOPRAM [Suspect]
     Dosage: 10 MG (10 MG, 1 IN 1 D) ORAL
     Route: 048
     Dates: end: 20090101
  2. KARDEGIC [Concomitant]
  3. ANTIHYPERTENSIVES [Concomitant]
  4. ANALGESICS [Concomitant]
  5. PRAZEPAM [Concomitant]

REACTIONS (1)
  - CONVULSION [None]
